FAERS Safety Report 7208638-3 (Version None)
Quarter: 2011Q1

REPORT INFORMATION
  Report Type: 
  Country: None (occurrence: None)
  Receive Date: 20110104
  Receipt Date: 20101228
  Transmission Date: 20110831
  Serious: Yes (Death)
  Sender: FDA-Public Use
  Company Number: BE-ROCHE-750284

PATIENT
  Sex: Female
  Weight: 55 kg

DRUGS (3)
  1. FLURACEDYL [Suspect]
     Indication: COLON CANCER
     Route: 042
     Dates: start: 20100617, end: 20101214
  2. BEVACIZUMAB [Suspect]
     Indication: COLON CANCER
     Route: 042
     Dates: start: 20100617, end: 20101214
  3. CAMPTO [Suspect]
     Indication: COLON CANCER
     Route: 042
     Dates: start: 20100617, end: 20101214

REACTIONS (4)
  - ABDOMINAL PAIN [None]
  - DIARRHOEA [None]
  - BRADYCARDIA [None]
  - NAUSEA [None]
